FAERS Safety Report 12981162 (Version 1)
Quarter: 2016Q4

REPORT INFORMATION
  Report Type: Spontaneous
  Country: US (occurrence: US)
  Receive Date: 20161129
  Receipt Date: 20161129
  Transmission Date: 20170207
  Serious: No
  Sender: FDA-Public Use
  Company Number: US-AUROBINDO-AUR-APU-2016-00758

PATIENT
  Sex: Female
  Weight: 62.14 kg

DRUGS (1)
  1. LOSARTAN POTASSIUM TABLETS USP 50MG [Suspect]
     Active Substance: LOSARTAN POTASSIUM
     Indication: HYPERTENSION
     Dosage: 50 MG, HALF TABLET AT BEDTIME
     Route: 048

REACTIONS (1)
  - Inappropriate schedule of drug administration [Unknown]
